FAERS Safety Report 18395650 (Version 2)
Quarter: 2021Q2

REPORT INFORMATION
  Report Type: Report from Study
  Country: US (occurrence: US)
  Receive Date: 20201017
  Receipt Date: 20210625
  Transmission Date: 20210717
  Serious: No
  Sender: FDA-Public Use
  Company Number: NVSC2020US278336

PATIENT
  Age: 65 Year
  Sex: Male

DRUGS (1)
  1. ENTRESTO [Suspect]
     Active Substance: SACUBITRIL\VALSARTAN
     Indication: PRODUCT USED FOR UNKNOWN INDICATION
     Dosage: 100 MG, BID (49/51 MG)
     Route: 048
     Dates: start: 202008

REACTIONS (4)
  - White coat hypertension [Recovering/Resolving]
  - Blood pressure abnormal [Recovering/Resolving]
  - Cough [Unknown]
  - Pyrexia [Recovering/Resolving]

NARRATIVE: CASE EVENT DATE: 20201013
